FAERS Safety Report 7746085-6 (Version None)
Quarter: 2011Q3

REPORT INFORMATION
  Report Type: 
  Country: None (occurrence: None)
  Receive Date: 20110913
  Receipt Date: 20110905
  Transmission Date: 20111222
  Serious: Yes (Other)
  Sender: FDA-Public Use
  Company Number: JP-ASTELLAS-2011JP006383

PATIENT
  Age: 70 Year
  Sex: Female

DRUGS (4)
  1. DEPAS [Concomitant]
     Dosage: UNK
     Route: 048
     Dates: start: 20100501
  2. FAMOTIDINE [Concomitant]
     Dosage: UNK
     Route: 048
     Dates: start: 20100501
  3. VESICARE [Suspect]
     Dosage: 10 MG, UNKNOWN/D
     Route: 048
     Dates: end: 20110903
  4. EBRANTIL [Concomitant]
     Dosage: UNK
     Route: 065

REACTIONS (1)
  - DEMENTIA [None]
